FAERS Safety Report 8964940 (Version 2)
Quarter: 2013Q1

REPORT INFORMATION
  Report Type: Other
  Country: FR (occurrence: FR)
  Receive Date: 20121213
  Receipt Date: 20130212
  Transmission Date: 20140127
  Serious: Yes (Death, Hospitalization)
  Sender: FDA-Public Use
  Company Number: FR-ARROW-2012-21557

PATIENT
  Age: 33 Year
  Sex: Male

DRUGS (10)
  1. LAMOTRIGINE [Suspect]
     Indication: PARTIAL SEIZURES
     Dosage: 25 MG, DAILY
     Route: 048
     Dates: start: 20121031, end: 20121112
  2. LAMOTRIGINE [Suspect]
     Indication: PARTIAL SEIZURES
  3. KALETRA [Suspect]
     Indication: HIV INFECTION
     Dosage: 1 DF, DAILY
     Route: 048
     Dates: start: 20121024, end: 20121112
  4. INTELENCE [Suspect]
     Indication: HIV INFECTION
     Dosage: 400 MG, DAILY
     Route: 048
     Dates: start: 20121024, end: 20121112
  5. URBANYL [Suspect]
     Indication: PARTIAL SEIZURES
     Dosage: 20 MG, DAILY
     Route: 048
     Dates: start: 20121031, end: 20121112
  6. SULFAMETHOXAZOLE AND TRIMETHOPRIM [Suspect]
     Indication: PROPHYLAXIS
     Dosage: 400 MG/80 MG
     Route: 048
     Dates: start: 20120923, end: 20121112
  7. FLUCONAZOLE [Suspect]
     Indication: ORAL CANDIDIASIS
     Dosage: 100 MG/50 ML
     Route: 048
     Dates: start: 20120929, end: 20121112
  8. AUGMENTIN [Suspect]
     Indication: PNEUMONIA ASPIRATION
     Dosage: UNK UNK, UNKNOWN
     Route: 048
     Dates: start: 201211, end: 201211
  9. INTERLEUKINS [Suspect]
     Indication: PROGRESSIVE MULTIFOCAL LEUKOENCEPHALOPATHY
     Dosage: 1000 UG, DAILY
     Route: 058
     Dates: start: 20121101, end: 20121101
  10. INTERLEUKINS [Suspect]
     Dosage: 1000 ?G, DAILY
     Route: 058
     Dates: start: 20121109, end: 20121109

REACTIONS (3)
  - Death [Fatal]
  - Cardiac arrest [None]
  - Pneumonia aspiration [None]
